FAERS Safety Report 5925244-9 (Version None)
Quarter: 2008Q4

REPORT INFORMATION
  Report Type: 
  Country: None (occurrence: None)
  Receive Date: 20081021
  Receipt Date: 20081009
  Transmission Date: 20090506
  Serious: Yes (Hospitalization)
  Sender: FDA-Public Use
  Company Number: DE-JNJFOC-20081002478

PATIENT
  Age: 25 Year
  Sex: Male

DRUGS (4)
  1. REMICADE [Suspect]
     Indication: IMMUNOSUPPRESSANT DRUG THERAPY
     Route: 042
  2. TACROLIMUS [Concomitant]
     Indication: IMMUNOSUPPRESSANT DRUG THERAPY
  3. STEROIDS [Concomitant]
     Indication: IMMUNOSUPPRESSANT DRUG THERAPY
  4. THYMOGLOBULIN [Concomitant]
     Indication: IMMUNOSUPPRESSANT DRUG THERAPY

REACTIONS (2)
  - BRONCHOPULMONARY ASPERGILLOSIS [None]
  - INTERVERTEBRAL DISCITIS [None]
